FAERS Safety Report 18600642 (Version 1)
Quarter: 2020Q4

REPORT INFORMATION
  Report Type: Spontaneous
  Country: US (occurrence: US)
  Receive Date: 20201210
  Receipt Date: 20201210
  Transmission Date: 20210114
  Serious: Yes (Hospitalization)
  Sender: FDA-Public Use
  Company Number: None

PATIENT
  Age: 68 Year
  Sex: Male

DRUGS (12)
  1. ENBREL [Suspect]
     Active Substance: ETANERCEPT
     Indication: RHEUMATOID ARTHRITIS
     Dosage: ?          OTHER FREQUENCY:QWK;?
     Route: 058
     Dates: start: 20160412
  2. METOPROL SUC [Concomitant]
  3. LISINOPRIL. [Concomitant]
     Active Substance: LISINOPRIL
  4. FOLIC ACID. [Concomitant]
     Active Substance: FOLIC ACID
  5. PREDNISONE. [Concomitant]
     Active Substance: PREDNISONE
  6. FAMOTIDINE. [Concomitant]
     Active Substance: FAMOTIDINE
  7. VITAMIN C [Concomitant]
     Active Substance: ASCORBIC ACID
  8. OMEGA-3 ACIDS [Concomitant]
     Active Substance: OMEGA-3 FATTY ACIDS
  9. ATORVASTATIN [Concomitant]
     Active Substance: ATORVASTATIN
  10. DULOXETINE. [Concomitant]
     Active Substance: DULOXETINE
  11. METHTREXATE [Concomitant]
  12. ASPIRIN. [Concomitant]
     Active Substance: ASPIRIN

REACTIONS (1)
  - Nephrolithiasis [None]

NARRATIVE: CASE EVENT DATE: 20201103
